FAERS Safety Report 4775529-7 (Version None)
Quarter: 2005Q3

REPORT INFORMATION
  Report Type: 
  Country: None (occurrence: None)
  Receive Date: 20050922
  Receipt Date: 20050912
  Transmission Date: 20060218
  Serious: Yes (Death)
  Sender: FDA-Public Use
  Company Number: US-JNJFOC-20040204996

PATIENT
  Sex: Female

DRUGS (9)
  1. INFLIXIMAB [Suspect]
     Route: 042
     Dates: start: 20001024, end: 20020115
  2. INFLIXIMAB [Suspect]
     Indication: RHEUMATOID ARTHRITIS
     Route: 042
     Dates: start: 20001024, end: 20020115
  3. ADALAT [Concomitant]
  4. PREDNISONE [Concomitant]
  5. ZOCOR [Concomitant]
  6. EFFEXOR [Concomitant]
  7. FUROSEMIDE [Concomitant]
  8. ISOSORBIDE [Concomitant]
  9. METHOTREXATE [Concomitant]

REACTIONS (1)
  - LUNG NEOPLASM [None]
